FAERS Safety Report 13017828 (Version 1)
Quarter: 2016Q4

REPORT INFORMATION
  Report Type: Spontaneous
  Country: US (occurrence: US)
  Receive Date: 20161212
  Receipt Date: 20161212
  Transmission Date: 20170207
  Serious: No
  Sender: FDA-Public Use
  Company Number: US-GLAXOSMITHKLINE-US2016181200

PATIENT
  Sex: Female

DRUGS (1)
  1. INCRUSE ELLIPTA [Suspect]
     Active Substance: UMECLIDINIUM BROMIDE
     Dosage: UNK UNK, BID

REACTIONS (4)
  - Drug prescribing error [Unknown]
  - Prescribed overdose [Unknown]
  - Off label use [Unknown]
  - Intercepted drug administration error [Unknown]
